FAERS Safety Report 8698470 (Version 4)
Quarter: 2012Q4

REPORT INFORMATION
  Report Type: 
  Country: US (occurrence: US)
  Receive Date: 20120802
  Receipt Date: 20121108
  Transmission Date: 20130627
  Serious: Yes (Other)
  Sender: FDA-Public Use
  Company Number: GB-ASTRAZENECA-2010SE34107

PATIENT
  Age: 71 Year
  Sex: Female

DRUGS (33)
  1. SEROQUEL [Suspect]
     Route: 048
  2. SEROQUEL [Suspect]
     Route: 048
     Dates: start: 20120106
  3. AMLODIPINE/NORVASC [Concomitant]
     Dosage: 10
     Dates: start: 20110413
  4. AMLODIPINE/NORVASC [Concomitant]
     Dates: start: 20120106
  5. ASA [Concomitant]
     Dates: start: 20110413
  6. BISCODYL [Concomitant]
     Dosage: 5
     Dates: start: 20110413
  7. CIPROFLOX [Concomitant]
     Dosage: 500
     Dates: start: 20110413
  8. KLONOPIN/CLONAZEPAM [Concomitant]
     Indication: ANXIETY
     Dates: start: 20050907
  9. KLONOPIN/CLONAZEPAM [Concomitant]
     Indication: AGITATION
     Dates: start: 20050907
  10. KLONOPIN/CLONAZEPAM [Concomitant]
     Indication: ANXIETY
     Dosage: 1
     Dates: start: 20110413
  11. KLONOPIN/CLONAZEPAM [Concomitant]
     Indication: AGITATION
     Dosage: 1
     Dates: start: 20110413
  12. KLONOPIN/CLONAZEPAM [Concomitant]
     Indication: ANXIETY
     Route: 048
     Dates: start: 20120106
  13. KLONOPIN/CLONAZEPAM [Concomitant]
     Indication: AGITATION
     Route: 048
     Dates: start: 20120106
  14. CLOPIDOG [Concomitant]
     Dates: start: 20110413
  15. GLYBUR/GLYBURIDE [Concomitant]
     Dates: start: 20110413
  16. GLYBUR/GLYBURIDE [Concomitant]
     Dates: start: 20021030
  17. HYDROXYZIN [Concomitant]
     Dosage: 25
     Dates: start: 20110413
  18. RISPERDAL [Concomitant]
     Indication: PSYCHOTIC DISORDER
     Dates: start: 20050907
  19. ZOLOFT [Concomitant]
     Dates: end: 20050907
  20. CELEXA [Concomitant]
     Indication: DEPRESSION
     Route: 048
     Dates: start: 20050907
  21. TRAZODONE [Concomitant]
     Indication: INSOMNIA
     Route: 048
     Dates: start: 20050907
  22. PREDNISONE [Concomitant]
     Route: 048
     Dates: start: 19950125
  23. NAPROSYN [Concomitant]
     Dosage: 250 TO 500 MG PO BID PRN
     Route: 048
     Dates: start: 19950125
  24. LUNESTA [Concomitant]
     Dates: end: 20090425
  25. LISINOPRIL [Concomitant]
     Dates: start: 20120106
  26. LOPRESSOR [Concomitant]
     Dates: start: 20120106
  27. OMEPRAZOLE [Concomitant]
     Dates: start: 20120106
  28. PLAVIX [Concomitant]
     Dates: start: 20120106
  29. COZAAR [Concomitant]
     Route: 048
     Dates: start: 20120106
  30. FUROSEMIDE [Concomitant]
     Dates: start: 20021030
  31. TRIAMTERENE [Concomitant]
     Dates: start: 20021030
  32. GEMFIBROZIL [Concomitant]
     Dates: start: 20021030
  33. PREMARIN [Concomitant]
     Dates: start: 20021030

REACTIONS (3)
  - Tardive dyskinesia [Unknown]
  - Speech disorder [Unknown]
  - Dyskinesia [Unknown]
